FAERS Safety Report 5776592-7 (Version None)
Quarter: 2008Q2

REPORT INFORMATION
  Report Type: 
  Country: None (occurrence: None)
  Receive Date: 20080616
  Receipt Date: 20080604
  Transmission Date: 20081010
  Serious: Yes (Death)
  Sender: FDA-Public Use
  Company Number: ADE2008-0199

PATIENT
  Age: 66 Year
  Sex: Female

DRUGS (6)
  1. MIRTAZAPINE [Suspect]
  2. AMITRIPTYLINE HCL [Suspect]
  3. ASPIRIN [Concomitant]
  4. ANADIN EXTRA [Suspect]
  5. DILTIAZEM [Suspect]
  6. ZOPICLONE [Suspect]
     Indication: SLEEP DISORDER
     Dosage: 7.5 MG - QD - PO
     Route: 048

REACTIONS (4)
  - COMPLETED SUICIDE [None]
  - HEPATIC STEATOSIS [None]
  - MULTIPLE DRUG OVERDOSE INTENTIONAL [None]
  - PULMONARY OEDEMA [None]
